FAERS Safety Report 6849098-1 (Version None)
Quarter: 2010Q3

REPORT INFORMATION
  Report Type: 
  Country: None (occurrence: None)
  Receive Date: 20100716
  Receipt Date: 20070927
  Transmission Date: 20110219
  Serious: No
  Sender: FDA-Public Use
  Company Number: US-PFIZER INC-2007081487

PATIENT
  Sex: Female
  Weight: 63.6 kg

DRUGS (3)
  1. CHANTIX [Suspect]
     Indication: SMOKING CESSATION THERAPY
     Dates: start: 20070901
  2. LIPITOR [Concomitant]
     Indication: BLOOD CHOLESTEROL
  3. CELEBREX [Concomitant]
     Indication: ARTHRITIS

REACTIONS (2)
  - AGEUSIA [None]
  - ANOSMIA [None]
